FAERS Safety Report 9031734 (Version 5)
Quarter: 2013Q4

REPORT INFORMATION
  Report Type: Spontaneous
  Country: US (occurrence: US)
  Receive Date: 20130124
  Receipt Date: 20131231
  Transmission Date: 20140711
  Serious: Yes (Hospitalization, Other)
  Sender: FDA-Public Use
  Company Number: US-009507513-1301USA011226

PATIENT
  Sex: Female
  Weight: 54.88 kg

DRUGS (7)
  1. FOSAMAX [Suspect]
     Indication: OSTEOPOROSIS PROPHYLAXIS
     Dosage: 10 MG, QD
     Route: 048
     Dates: start: 19950929, end: 200110
  2. FOSAMAX [Suspect]
     Dosage: 70 MG, QW
     Route: 048
     Dates: start: 200110, end: 200804
  3. ALENDRONATE SODIUM [Suspect]
     Indication: OSTEOPOROSIS PROPHYLAXIS
     Dosage: 70 MG, QW
     Route: 048
     Dates: start: 200804, end: 2011
  4. ASCORBIC ACID [Concomitant]
     Dosage: 500 MG, QD
     Dates: start: 1993
  5. CITRACAL + D [Concomitant]
     Dosage: 600MG (CA) 500 IU (D)
     Dates: start: 1993
  6. VITAMIN E [Concomitant]
     Dosage: 400 IU, QD
     Dates: start: 1993
  7. FLUOXETINE [Concomitant]
     Indication: ANXIETY
     Dosage: UNK
     Dates: start: 1990

REACTIONS (70)
  - Femur fracture [Unknown]
  - Intramedullary rod insertion [Unknown]
  - Knee arthroplasty [Unknown]
  - Renal failure chronic [Not Recovered/Not Resolved]
  - Spinal fusion surgery [Unknown]
  - Spondylolisthesis [Unknown]
  - Humerus fracture [Unknown]
  - Ischaemia [Unknown]
  - Spinal laminectomy [Unknown]
  - Cardiac failure congestive [Unknown]
  - Intervertebral disc operation [Unknown]
  - Cerebrovascular accident [Unknown]
  - Cerebrovascular accident [Unknown]
  - Cerebrovascular accident [Unknown]
  - Lung lobectomy [Unknown]
  - Tooth extraction [Unknown]
  - Lower limb fracture [Unknown]
  - Foot fracture [Unknown]
  - Rectal haemorrhage [Unknown]
  - Arthropod bite [Unknown]
  - Hypertension [Unknown]
  - Hyperlipidaemia [Unknown]
  - Intervertebral disc protrusion [Unknown]
  - Intervertebral disc protrusion [Unknown]
  - Anaemia postoperative [Unknown]
  - Atrial septal defect [Unknown]
  - Aneurysm [Unknown]
  - Chronic obstructive pulmonary disease [Not Recovered/Not Resolved]
  - Brain natriuretic peptide increased [Unknown]
  - Carotid bruit [Unknown]
  - Osteopenia [Unknown]
  - Fall [Unknown]
  - Transfusion [Unknown]
  - Cystitis [Unknown]
  - Transfusion [Unknown]
  - Measles [Unknown]
  - Varicella [Unknown]
  - Pertussis [Unknown]
  - Pneumonia [Unknown]
  - Knee operation [Unknown]
  - Diabetic neuropathy [Unknown]
  - Joint dislocation [Unknown]
  - Pulmonary mass [Unknown]
  - Depression [Unknown]
  - Large intestine polyp [Unknown]
  - Iron deficiency anaemia [Unknown]
  - Fibrosis [Unknown]
  - Anaemia [Unknown]
  - Diabetes mellitus inadequate control [Recovered/Resolved]
  - Transient ischaemic attack [Unknown]
  - Diabetic nephropathy [Unknown]
  - Diabetic retinopathy [Unknown]
  - Gastrointestinal haemorrhage [Unknown]
  - Spinal osteoarthritis [Unknown]
  - Limb operation [Unknown]
  - Cataract operation [Unknown]
  - Mastoid operation [Unknown]
  - Respiratory tract infection fungal [Unknown]
  - Hypoglycaemia [Unknown]
  - Urinary tract infection [Unknown]
  - Bundle branch block right [Unknown]
  - Bundle branch block left [Unknown]
  - Carpal tunnel decompression [Unknown]
  - Excoriation [Unknown]
  - Contusion [Unknown]
  - Osteoarthritis [Unknown]
  - Gastrooesophageal reflux disease [Unknown]
  - Back pain [Recovered/Resolved]
  - Arthralgia [Not Recovered/Not Resolved]
  - Constipation [Unknown]
